FAERS Safety Report 12989446 (Version 1)
Quarter: 2016Q4

REPORT INFORMATION
  Report Type: Spontaneous
  Country: GB (occurrence: GB)
  Receive Date: 20161201
  Receipt Date: 20161201
  Transmission Date: 20170207
  Serious: Yes (Hospitalization)
  Sender: FDA-Public Use
  Company Number: GB-SUN PHARMACEUTICAL INDUSTRIES LTD-2015R1-100796

PATIENT
  Age: 13 Year
  Sex: Female
  Weight: 45 kg

DRUGS (3)
  1. BISOPROLOL [Concomitant]
     Active Substance: BISOPROLOL
     Indication: PRODUCT USED FOR UNKNOWN INDICATION
     Dosage: 25 MG, SINGLE
     Route: 065
  2. ASPIRIN. [Concomitant]
     Active Substance: ASPIRIN
     Indication: PRODUCT USED FOR UNKNOWN INDICATION
     Dosage: 225 MG, SINGLE
     Route: 065
  3. FLECAINIDE [Suspect]
     Active Substance: FLECAINIDE
     Indication: PRODUCT USED FOR UNKNOWN INDICATION
     Dosage: 900 MG, SINGLE
     Route: 065

REACTIONS (8)
  - Cardiac arrest [Recovering/Resolving]
  - Overdose [Recovering/Resolving]
  - Brugada syndrome [Recovering/Resolving]
  - Hepatic ischaemia [Recovering/Resolving]
  - Torsade de pointes [Recovering/Resolving]
  - Atrioventricular block first degree [Recovering/Resolving]
  - Bundle branch block right [Recovering/Resolving]
  - Liver injury [Recovering/Resolving]
